FAERS Safety Report 10527014 (Version 1)
Quarter: 2014Q4

REPORT INFORMATION
  Report Type: Spontaneous
  Country: US (occurrence: None)
  Receive Date: 20141016
  Receipt Date: 20141016
  Transmission Date: 20150528
  Serious: Yes (Hospitalization)
  Sender: FDA-Public Use
  Company Number: US-H14001-14-01090

PATIENT
  Age: 57 Year

DRUGS (2)
  1. DEXAMETHASONE DISODIUM PHOSPHATE [Suspect]
     Active Substance: DEXAMETHASONE SODIUM PHOSPHATE
     Indication: PLASMA CELL MYELOMA
     Dosage: DAYS 1, 2, 4, 5, 8, 9, 11 AND 12 (NOT OTHERWISE SPECIFIED)
     Route: 042
  2. VELCADE [Suspect]
     Active Substance: BORTEZOMIB
     Indication: PLASMA CELL MYELOMA
     Dosage: DAYS 1, 4, 8, AND 11 (NOT OTHERWISE SPECIFIED)
     Route: 042
     Dates: start: 20110104, end: 20110331

REACTIONS (2)
  - Urinary tract infection [None]
  - Hypotension [None]

NARRATIVE: CASE EVENT DATE: 20110522
